FAERS Safety Report 8006537-0 (Version None)
Quarter: 2011Q4

REPORT INFORMATION
  Report Type: 
  Country: None (occurrence: None)
  Receive Date: 20111226
  Receipt Date: 20101220
  Transmission Date: 20120403
  Serious: Yes (Death)
  Sender: FDA-Public Use
  Company Number: PHHY2010NL86852

PATIENT
  Age: 38 Year
  Sex: Male

DRUGS (6)
  1. ALBUTEROL SULFATE AUTOHALER [Concomitant]
     Dosage: UNK
  2. PULMOZYME [Concomitant]
  3. MUCOCLEAR [Concomitant]
     Dosage: UNK
  4. POLYMYXINS [Concomitant]
  5. COLISTIN [Concomitant]
  6. TOBI [Suspect]
     Indication: CYSTIC FIBROSIS

REACTIONS (1)
  - DEATH [None]
